FAERS Safety Report 7106273-9 (Version None)
Quarter: 2010Q4

REPORT INFORMATION
  Report Type: 
  Country: None (occurrence: None)
  Receive Date: 20101116
  Receipt Date: 20101110
  Transmission Date: 20110411
  Serious: Yes (Hospitalization)
  Sender: FDA-Public Use
  Company Number: JP-PFIZER INC-2010144219

PATIENT
  Age: 8 Month
  Sex: Male

DRUGS (2)
  1. METHYLPREDNISOLONE SODIUM SUCCINATE [Suspect]
     Indication: WHEEZING
     Route: 041
  2. METHYLPREDNISOLONE SODIUM SUCCINATE [Suspect]
     Indication: DYSPNOEA

REACTIONS (4)
  - ANAL ABSCESS [None]
  - KLEBSIELLA SEPSIS [None]
  - PERIPHERAL CIRCULATORY FAILURE [None]
  - SEPSIS [None]
